FAERS Safety Report 7792604-3 (Version None)
Quarter: 2011Q4

REPORT INFORMATION
  Report Type: 
  Country: None (occurrence: None)
  Receive Date: 20111003
  Receipt Date: 20110923
  Transmission Date: 20120403
  Serious: Yes (Hospitalization)
  Sender: FDA-Public Use
  Company Number: IT-ASTRAZENECA-2011SE57494

PATIENT
  Age: 19034 Day
  Sex: Male

DRUGS (2)
  1. SEROQUEL XR [Suspect]
     Indication: BIPOLAR I DISORDER
     Route: 048
     Dates: start: 20110521, end: 20110706
  2. EFFEXOR [Suspect]
     Indication: DEPRESSION
     Route: 048
     Dates: start: 20110612, end: 20110708

REACTIONS (4)
  - CONSTIPATION [None]
  - SUBILEUS [None]
  - URINARY RETENTION [None]
  - ILEUS PARALYTIC [None]
